FAERS Safety Report 4897895-4 (Version None)
Quarter: 2006Q1

REPORT INFORMATION
  Report Type: 
  Country: None (occurrence: None)
  Receive Date: 20060201
  Receipt Date: 20060109
  Transmission Date: 20060701
  Serious: Yes (Death, Hospitalization)
  Sender: FDA-Public Use
  Company Number: US-MERCK-0601USA01026

PATIENT
  Age: 63 Year
  Sex: Female
  Weight: 80 kg

DRUGS (14)
  1. VIOXX [Suspect]
     Indication: OSTEOARTHRITIS
     Route: 048
     Dates: start: 20000301, end: 20030113
  2. VIOXX [Suspect]
     Route: 048
     Dates: start: 20000301, end: 20030113
  3. ALPRAZOLAM [Concomitant]
     Route: 065
  4. ALBUTEROL [Concomitant]
     Route: 065
  5. ATROVENT [Concomitant]
     Route: 065
  6. AVELOX [Concomitant]
     Route: 065
  7. DARVOCET-N 50 [Concomitant]
     Route: 065
  8. DURATUSS [Concomitant]
     Route: 065
  9. MEDROL [Concomitant]
     Route: 065
  10. SEREVENT [Concomitant]
     Route: 065
  11. SYNTHROID [Concomitant]
     Route: 065
  12. TYLENOL ARTHRITIS EXTENDED RELIEF [Concomitant]
     Route: 065
  13. ZOLOFT [Concomitant]
     Route: 065
  14. GUAIFENESIN AND PHENYLEPHRINE HYDROCHLORIDE AND PHENYLPROPANOLAMINE HY [Concomitant]
     Route: 065

REACTIONS (4)
  - ARTERIOSCLEROSIS CORONARY ARTERY [None]
  - CARDIAC ARREST [None]
  - CHRONIC OBSTRUCTIVE PULMONARY DISEASE [None]
  - MYOCARDIAL INFARCTION [None]
